FAERS Safety Report 13334568 (Version 1)
Quarter: 2017Q1

REPORT INFORMATION
  Report Type: Spontaneous
  Country: US (occurrence: US)
  Receive Date: 20170314
  Receipt Date: 20170314
  Transmission Date: 20170428
  Serious: Yes (Hospitalization, Other)
  Sender: FDA-Public Use
  Company Number: US-JNJFOC-20170308569

PATIENT
  Age: 56 Year
  Sex: Male
  Weight: 116 kg

DRUGS (15)
  1. RITUXAN [Suspect]
     Active Substance: RITUXIMAB
     Indication: MANTLE CELL LYMPHOMA REFRACTORY
     Dosage: CYCLE-5 (DELAY IN START AND STOP)
     Dates: start: 20160629
  2. RITUXAN [Suspect]
     Active Substance: RITUXIMAB
     Indication: MANTLE CELL LYMPHOMA REFRACTORY
     Dosage: CYCLE-7
     Dates: start: 20160921
  3. RITUXAN [Suspect]
     Active Substance: RITUXIMAB
     Indication: MANTLE CELL LYMPHOMA REFRACTORY
     Dates: start: 20160504
  4. RITUXAN [Suspect]
     Active Substance: RITUXIMAB
     Indication: MANTLE CELL LYMPHOMA REFRACTORY
     Dates: start: 20160217, end: 20160309
  5. ZOFRAN [Concomitant]
     Active Substance: ONDANSETRON HYDROCHLORIDE
     Route: 048
     Dates: start: 20161214
  6. ZOVIRAX [Concomitant]
     Active Substance: ACYCLOVIR
     Dates: start: 20160922
  7. XANAX [Concomitant]
     Active Substance: ALPRAZOLAM
     Route: 048
     Dates: start: 20161214
  8. IMBRUVICA [Suspect]
     Active Substance: IBRUTINIB
     Indication: MANTLE CELL LYMPHOMA REFRACTORY
     Route: 048
     Dates: start: 20160809
  9. RITUXAN [Suspect]
     Active Substance: RITUXIMAB
     Indication: MANTLE CELL LYMPHOMA REFRACTORY
     Dosage: CYCLE-9
     Dates: start: 20161214
  10. RITUXAN [Suspect]
     Active Substance: RITUXIMAB
     Indication: MANTLE CELL LYMPHOMA REFRACTORY
     Dosage: CYCLE-10
     Dates: start: 20170208
  11. IMBRUVICA [Suspect]
     Active Substance: IBRUTINIB
     Indication: MANTLE CELL LYMPHOMA REFRACTORY
     Route: 048
     Dates: start: 20151217, end: 20160728
  12. RITUXAN [Suspect]
     Active Substance: RITUXIMAB
     Indication: MANTLE CELL LYMPHOMA REFRACTORY
     Dosage: CYCLE-8
     Dates: start: 20161020
  13. PRILOSEC [Concomitant]
     Active Substance: OMEPRAZOLE MAGNESIUM
     Route: 048
     Dates: start: 20161214
  14. RITUXAN [Suspect]
     Active Substance: RITUXIMAB
     Indication: MANTLE CELL LYMPHOMA REFRACTORY
     Dosage: 375 MG/M2, ONCE PER WEEK FOR FOUR WEEKS
     Dates: start: 20160217, end: 20160309
  15. RITUXAN [Suspect]
     Active Substance: RITUXIMAB
     Indication: MANTLE CELL LYMPHOMA REFRACTORY
     Dosage: CYCLE 6
     Dates: start: 20160825

REACTIONS (11)
  - Transaminases increased [Unknown]
  - Red blood cell count increased [Unknown]
  - Cholecystectomy [Unknown]
  - Blood alkaline phosphatase increased [Unknown]
  - Blood bilirubin increased [Unknown]
  - Haematocrit increased [Unknown]
  - Polycythaemia [Unknown]
  - Chest pain [Unknown]
  - Abdominal hernia [Unknown]
  - Haemoglobin increased [Unknown]
  - Pneumonia [Unknown]

NARRATIVE: CASE EVENT DATE: 201606
